FAERS Safety Report 6058275-1 (Version None)
Quarter: 2009Q1

REPORT INFORMATION
  Report Type: 
  Country: None (occurrence: None)
  Receive Date: 20090123
  Receipt Date: 20080903
  Transmission Date: 20090719
  Serious: Yes (Death)
  Sender: FDA-Public Use
  Company Number: GXBR2008US01553

PATIENT
  Age: 87 Year
  Sex: Female
  Weight: 61.2 kg

DRUGS (5)
  1. AMIODARONE HCL [Suspect]
     Dosage: 200 MG, QD, ORAL, 100 MG, QD, ORAL
     Route: 048
     Dates: start: 20040301
  2. COUMADIN [Concomitant]
  3. SYNTHROID [Concomitant]
  4. TOPROL-XL [Concomitant]
  5. NORVASC [Concomitant]

REACTIONS (12)
  - ACUTE RESPIRATORY DISTRESS SYNDROME [None]
  - ATRIAL FIBRILLATION [None]
  - BIOPSY LUNG [None]
  - DYSPNOEA [None]
  - FATIGUE [None]
  - INSOMNIA [None]
  - MALAISE [None]
  - MECHANICAL VENTILATION [None]
  - OXYGEN SATURATION DECREASED [None]
  - PNEUMONIA [None]
  - THORACOTOMY [None]
  - WEIGHT INCREASED [None]
